FAERS Safety Report 5099831-7 (Version None)
Quarter: 2006Q3

REPORT INFORMATION
  Report Type: 
  Country: None (occurrence: None)
  Receive Date: 20060906
  Receipt Date: 20060906
  Transmission Date: 20061208
  Serious: Yes (Disabling, Other)
  Sender: FDA-Public Use
  Company Number: None

PATIENT
  Age: 54 Year
  Sex: Female
  Weight: 81.6475 kg

DRUGS (7)
  1. CIPRO [Suspect]
     Indication: INFECTION
     Dosage: 500MG   TWICE DAILY  ORALLY
     Route: 048
     Dates: start: 20060828, end: 20060829
  2. SYNTHROID [Concomitant]
  3. TRAZODONE HCL [Concomitant]
  4. MGOX [Concomitant]
  5. XANAX [Concomitant]
  6. LICO3 [Concomitant]
  7. GLUCOPHAGE [Concomitant]

REACTIONS (5)
  - ABDOMINAL PAIN [None]
  - LYMPHADENOPATHY [None]
  - NEUROPATHY [None]
  - PRURITUS [None]
  - PYREXIA [None]
